FAERS Safety Report 5084292-4 (Version None)
Quarter: 2006Q3

REPORT INFORMATION
  Report Type: 
  Country: None (occurrence: None)
  Receive Date: 20060821
  Receipt Date: 20060814
  Transmission Date: 20061208
  Serious: Yes (Other)
  Sender: FDA-Public Use
  Company Number: US-JNJFOC-20060803271

PATIENT
  Sex: Male
  Weight: 73.94 kg

DRUGS (7)
  1. REMICADE [Suspect]
     Indication: CROHN'S DISEASE
     Dosage: ^DOUBLE DOSE^
     Route: 042
  2. FLAGYL I.V. [Concomitant]
     Indication: PROPHYLAXIS
  3. B 12 [Concomitant]
     Indication: COLECTOMY
  4. VITAMIN D [Concomitant]
     Dosage: 50000.0 UNITS
  5. FOSAMAX [Concomitant]
  6. OSCAL D [Concomitant]
  7. XANAX [Concomitant]

REACTIONS (2)
  - PIGMENTATION DISORDER [None]
  - SYSTEMIC LUPUS ERYTHEMATOSUS [None]
